FAERS Safety Report 5671850-9 (Version None)
Quarter: 2008Q1

REPORT INFORMATION
  Report Type: 
  Country: None (occurrence: None)
  Receive Date: 20080318
  Receipt Date: 20080318
  Transmission Date: 20080703
  Serious: Yes (Life-Threatening, Hospitalization)
  Sender: FDA-Public Use
  Company Number: None

PATIENT
  Sex: Male
  Weight: 102 kg

DRUGS (2)
  1. INFUSE BONE GRAFT MEDTRONIC [Suspect]
     Indication: SPINAL FUSION SURGERY
     Dosage: 8 CC ONCE INTRADISCAL
     Route: 024
     Dates: start: 20060504, end: 20060504
  2. INFUSE BONE GRAFT MEDTRONIC [Suspect]
     Indication: SURGICAL FAILURE
     Dosage: 16 CC ONCE OTHER
     Route: 050
     Dates: start: 20070920, end: 20070920

REACTIONS (12)
  - BACK PAIN [None]
  - CONFUSIONAL STATE [None]
  - GOUT [None]
  - MENTAL STATUS CHANGES [None]
  - PERICARDIAL EFFUSION [None]
  - POST PROCEDURAL INFECTION [None]
  - PULMONARY EMBOLISM [None]
  - RENAL FAILURE ACUTE [None]
  - SEPSIS [None]
  - SUPRAVENTRICULAR TACHYCARDIA [None]
  - SURGICAL FAILURE [None]
  - SYNOVIAL FLUID CRYSTAL PRESENT [None]
